FAERS Safety Report 8313513-7 (Version None)
Quarter: 2012Q2

REPORT INFORMATION
  Report Type: 
  Country: None (occurrence: None)
  Receive Date: 20120426
  Receipt Date: 20120417
  Transmission Date: 20120825
  Serious: Yes (Other)
  Sender: FDA-Public Use
  Company Number: FR-JNJFOC-20120408512

PATIENT
  Sex: Male

DRUGS (7)
  1. LEXOMIL [Concomitant]
     Route: 048
  2. ACETAMINOPHEN [Concomitant]
     Route: 048
     Dates: start: 20120326
  3. PROSCAR [Concomitant]
     Route: 048
  4. CRESTOR [Concomitant]
     Indication: DYSLIPIDAEMIA
     Route: 048
  5. XARELTO [Suspect]
     Indication: THROMBOSIS PROPHYLAXIS
     Route: 048
     Dates: start: 20120327, end: 20120328
  6. XARELTO [Suspect]
     Indication: KNEE ARTHROPLASTY
     Route: 048
     Dates: start: 20120327, end: 20120328
  7. LANSOPRAZOLE [Concomitant]
     Route: 048

REACTIONS (1)
  - DEEP VEIN THROMBOSIS [None]
